FAERS Safety Report 8449033-9 (Version None)
Quarter: 2012Q2

REPORT INFORMATION
  Report Type: 
  Country: None (occurrence: None)
  Receive Date: 20120611
  Receipt Date: 20120530
  Transmission Date: 20120825
  Serious: Yes (Hospitalization)
  Sender: FDA-Public Use
  Company Number: 1220537

PATIENT
  Age: 58 Year
  Sex: Female

DRUGS (5)
  1. ANAFRANIL [Concomitant]
  2. PACLITAXEL [Suspect]
     Indication: OVARIAN CANCER
     Dosage: 299 MG MILLIGRAM(S), INTRAVENOUS
     Route: 042
     Dates: start: 20120227, end: 20120227
  3. NIMESULIDE [Concomitant]
  4. CARBOPLATIN [Suspect]
     Indication: OVARIAN CANCER
     Dosage: 575 MG MILLIGRAM(S), INTRAVENOUS
     Route: 042
     Dates: start: 20120227, end: 20120305
  5. FLUVOXAMINE MALEATE [Concomitant]

REACTIONS (4)
  - DERMATITIS EXFOLIATIVE [None]
  - ALANINE AMINOTRANSFERASE INCREASED [None]
  - JAUNDICE [None]
  - ASPARTATE AMINOTRANSFERASE INCREASED [None]
